FAERS Safety Report 4994300-4 (Version None)
Quarter: 2006Q2

REPORT INFORMATION
  Report Type: 
  Country: None (occurrence: None)
  Receive Date: 20060503
  Receipt Date: 20060424
  Transmission Date: 20061013
  Serious: Yes (Hospitalization, Congenital Anomaly, Other)
  Sender: FDA-Public Use
  Company Number: 2006055179

PATIENT
  Age: 25 Year
  Sex: Male
  Weight: 97.977 kg

DRUGS (15)
  1. ZOLOFT [Suspect]
     Indication: DEPRESSION
     Dosage: 150 MG (150 MG, 1 IN 1 D), ORAL
     Route: 048
  2. ZOLOFT [Suspect]
     Indication: OBSESSIVE-COMPULSIVE DISORDER
     Dosage: 150 MG (150 MG, 1 IN 1 D), ORAL
     Route: 048
  3. ZOLOFT [Suspect]
     Indication: POST-TRAUMATIC STRESS DISORDER
     Dosage: 150 MG (150 MG, 1 IN 1 D), ORAL
     Route: 048
  4. ZOLOFT [Suspect]
     Indication: SOCIAL PHOBIA
     Dosage: 150 MG (150 MG, 1 IN 1 D), ORAL
     Route: 048
  5. BACTRIM [Suspect]
     Indication: ILL-DEFINED DISORDER
     Dosage: UNKNOWN
     Route: 065
     Dates: start: 20060101
  6. ADDERALL 10 [Concomitant]
  7. ALLEGRA [Concomitant]
  8. ENTEX PSE (GUAIFENESIN, PSEUDOEPHEDRINE HYDROCHLORIDE) [Concomitant]
  9. REGLAN [Concomitant]
  10. KLONOPIN [Concomitant]
  11. PHENERGAN EXPECTORANT (CHLOROFORM, CITRIC ACID, IPECACUANHA FLUID EXTR [Concomitant]
  12. ALL OTHER THERAPEUTIC PRODUCTS (ALL OTHER THERAPEUTIC PRODUCTS) [Concomitant]
  13. CENTRUM (MINERALS NOS, VITAMINS NOS) [Concomitant]
  14. PAREGORIC (ANISE OIL, BENZOIC ACID, CAMPHOR, ETHANOL, GLYCEROL, OPIUM) [Concomitant]
  15. ACIPHEX [Concomitant]

REACTIONS (15)
  - BLOOD URINE PRESENT [None]
  - CONDITION AGGRAVATED [None]
  - COORDINATION ABNORMAL [None]
  - EPISTAXIS [None]
  - INTENTIONAL SELF-INJURY [None]
  - MENTAL DISORDER [None]
  - NAUSEA [None]
  - OBSESSIVE-COMPULSIVE DISORDER [None]
  - PUPIL FIXED [None]
  - RENAL FAILURE [None]
  - SEASONAL ALLERGY [None]
  - STRESS [None]
  - SUICIDAL IDEATION [None]
  - THERMAL BURN [None]
  - VISION BLURRED [None]
